FAERS Safety Report 8541130-2 (Version None)
Quarter: 2012Q3

REPORT INFORMATION
  Report Type: 
  Country: None (occurrence: None)
  Receive Date: 20120726
  Receipt Date: 20110907
  Transmission Date: 20120928
  Serious: No
  Sender: FDA-Public Use
  Company Number: US-ASTRAZENECA-2011SE49516

PATIENT
  Age: 62 Year
  Sex: Female

DRUGS (1)
  1. SEROQUEL XR [Suspect]
     Indication: DEPRESSION
     Route: 048

REACTIONS (9)
  - GLYCOSYLATED HAEMOGLOBIN INCREASED [None]
  - WEIGHT DECREASED [None]
  - HYPERTENSION [None]
  - VISUAL IMPAIRMENT [None]
  - OSTEOPOROSIS [None]
  - HYPOPHAGIA [None]
  - RESPIRATORY FUME INHALATION DISORDER [None]
  - ILL-DEFINED DISORDER [None]
  - NEOPLASM [None]
